FAERS Safety Report 8563812-9 (Version None)
Quarter: 2012Q3

REPORT INFORMATION
  Report Type: 
  Country: None (occurrence: None)
  Receive Date: 20120727
  Receipt Date: 20120727
  Transmission Date: 20120928
  Serious: Yes (Other)
  Sender: FDA-Public Use
  Company Number: None

PATIENT
  Age: 67 Year
  Sex: Female

DRUGS (1)
  1. LYRICA [Suspect]
     Indication: NERVE INJURY
     Dosage: 50 MG TWICE DAILY PO
     Route: 048
     Dates: start: 20120704, end: 20120709

REACTIONS (4)
  - SENSORY LOSS [None]
  - ORAL DISORDER [None]
  - SKIN EXFOLIATION [None]
  - AGEUSIA [None]
